FAERS Safety Report 15489224 (Version 2)
Quarter: 2018Q4

REPORT INFORMATION
  Report Type: Spontaneous
  Country: DE (occurrence: DE)
  Receive Date: 20181011
  Receipt Date: 20181130
  Transmission Date: 20190205
  Serious: Yes (Hospitalization, Other)
  Sender: FDA-Public Use
  Company Number: US-ASTRAZENECA-2018SF31545

PATIENT
  Sex: Male
  Weight: 3.9 kg

DRUGS (6)
  1. SYNAGIS [Suspect]
     Active Substance: PALIVIZUMAB
     Indication: PRODUCT USED FOR UNKNOWN INDICATION
     Dosage: 56.0MG/ML UNKNOWN
     Route: 030
  2. SYNAGIS [Suspect]
     Active Substance: PALIVIZUMAB
     Indication: PRODUCT USED FOR UNKNOWN INDICATION
     Dosage: 56.0MG/ML UNKNOWN
     Route: 030
     Dates: start: 20181002, end: 20181002
  3. FERRUM HAUSMANN (FERROUS FUMARATE\IRON SUCROSE) [Concomitant]
     Active Substance: FERROUS FUMARATE\IRON SUCROSE
     Indication: ANAEMIA PROPHYLAXIS
  4. SILDENAFIL. [Concomitant]
     Active Substance: SILDENAFIL
     Indication: PULMONARY HYPERTENSION
  5. SPIRONOLACTON [Concomitant]
     Active Substance: SPIRONOLACTONE
     Indication: BRONCHOPULMONARY DYSPLASIA
  6. D-FLUORETTE [Concomitant]
     Indication: PROPHYLAXIS

REACTIONS (2)
  - Stress [Unknown]
  - Apnoea [Unknown]
